FAERS Safety Report 7016616-2 (Version None)
Quarter: 2010Q3

REPORT INFORMATION
  Report Type: 
  Country: None (occurrence: None)
  Receive Date: 20100927
  Receipt Date: 20100916
  Transmission Date: 20110219
  Serious: Yes (Other)
  Sender: FDA-Public Use
  Company Number: B0671283A

PATIENT
  Age: 58 Year
  Sex: Female

DRUGS (2)
  1. SERETIDE [Suspect]
     Route: 055
     Dates: start: 20090701, end: 20100801
  2. EGILOK [Concomitant]

REACTIONS (1)
  - VISUAL ACUITY REDUCED [None]
